FAERS Safety Report 5814281-0 (Version None)
Quarter: 2008Q3

REPORT INFORMATION
  Report Type: 
  Country: None (occurrence: None)
  Receive Date: 20080717
  Receipt Date: 20080711
  Transmission Date: 20090109
  Serious: Yes (Life-Threatening, Hospitalization)
  Sender: FDA-Public Use
  Company Number: DE-ELI_LILLY_AND_COMPANY-DE200807002451

PATIENT
  Sex: Female

DRUGS (9)
  1. BYETTA [Suspect]
     Indication: DIABETES MELLITUS
     Dosage: 10 UG, 2/D
     Route: 058
     Dates: start: 20080301
  2. NOVONORM [Concomitant]
     Dosage: 0.5 MG, 3/D
     Route: 065
  3. TRAMADON [Concomitant]
     Dosage: UNK, 2/D
     Route: 065
  4. FUROSEMIDE [Concomitant]
     Dosage: UNK, DAILY (1/D)
     Route: 065
  5. METFORMIN HCL [Concomitant]
     Dosage: 850 MG, 3/D
     Route: 065
  6. ALLOPURINOL [Concomitant]
     Dosage: 300 MG, UNKNOWN
     Route: 065
  7. SIMVASTATIN [Concomitant]
     Dosage: 20 MG, UNKNOWN
     Route: 065
  8. LEVOTHYROXINE SODIUM [Concomitant]
     Dosage: 125 UG, UNKNOWN
     Route: 065
  9. AMLODIPINE [Concomitant]
     Dosage: 10 MG, UNKNOWN
     Route: 065

REACTIONS (3)
  - ARRHYTHMIA [None]
  - EXTRASYSTOLES [None]
  - VENTRICULAR FIBRILLATION [None]
